FAERS Safety Report 14677110 (Version 1)
Quarter: 2018Q1

REPORT INFORMATION
  Report Type: Spontaneous
  Country: US (occurrence: US)
  Receive Date: 20180323
  Receipt Date: 20180323
  Transmission Date: 20180509
  Serious: Yes (Hospitalization)
  Sender: FDA-Public Use
  Company Number: None

PATIENT
  Age: 70 Year
  Sex: Female
  Weight: 62.73 kg

DRUGS (1)
  1. TEMOZOLOMIDE. [Suspect]
     Active Substance: TEMOZOLOMIDE
     Dates: end: 20150319

REACTIONS (4)
  - Dyspnoea [None]
  - Chest pain [None]
  - Pulmonary embolism [None]
  - Oropharyngeal pain [None]

NARRATIVE: CASE EVENT DATE: 20150418
